FAERS Safety Report 23030772 (Version 1)
Quarter: 2023Q4

REPORT INFORMATION
  Report Type: Spontaneous
  Country: RU (occurrence: RU)
  Receive Date: 20231005
  Receipt Date: 20231005
  Transmission Date: 20240109
  Serious: Yes (Other)
  Sender: FDA-Public Use
  Company Number: RU-AMAROX PHARMA-HET2023RU02799

PATIENT
  Age: 43 Year
  Sex: Male
  Weight: 61 kg

DRUGS (1)
  1. TENOFOVIR [Suspect]
     Active Substance: TENOFOVIR
     Indication: HIV infection
     Dosage: 300 MILLIGRAM, Q.D, 1 INTAKE 1 TABLET
     Route: 048
     Dates: start: 20230531, end: 20230613

REACTIONS (1)
  - Dermatitis allergic [Recovering/Resolving]

NARRATIVE: CASE EVENT DATE: 20230609
